FAERS Safety Report 17932115 (Version 1)
Quarter: 2020Q2

REPORT INFORMATION
  Report Type: Report from Study
  Country: US (occurrence: US)
  Receive Date: 20200623
  Receipt Date: 20200623
  Transmission Date: 20200714
  Serious: Yes (Hospitalization, Other)
  Sender: FDA-Public Use
  Company Number: US-ACTELION-A-US2020-204101

PATIENT
  Sex: Female
  Weight: 45.81 kg

DRUGS (4)
  1. ORENITRAM [Concomitant]
     Active Substance: TREPROSTINIL
     Dosage: .875 MG, TID
  2. OPSUMIT [Suspect]
     Active Substance: MACITENTAN
     Indication: PULMONARY ARTERIAL HYPERTENSION
     Dosage: 10 MG, QD
     Route: 048
     Dates: start: 20180104
  3. ORENITRAM [Concomitant]
     Active Substance: TREPROSTINIL
     Dosage: UNK MG, BID
  4. ADEMPAS [Concomitant]
     Active Substance: RIOCIGUAT

REACTIONS (19)
  - Diarrhoea [Unknown]
  - Abdominal distension [Recovering/Resolving]
  - Dizziness [Unknown]
  - Abdominal pain upper [Unknown]
  - Pulmonary hypertension [Unknown]
  - Blindness transient [Unknown]
  - Peripheral swelling [Unknown]
  - Dysuria [Unknown]
  - Cough [Unknown]
  - Decreased appetite [Unknown]
  - Palpitations [Unknown]
  - Fluid retention [Unknown]
  - Loss of personal independence in daily activities [Unknown]
  - Disease progression [Unknown]
  - Dyspnoea exertional [Unknown]
  - Dyspnoea at rest [Unknown]
  - Dyspnoea [Unknown]
  - Feeding disorder [Unknown]
  - Abdominal discomfort [Unknown]
